FAERS Safety Report 5956751-0 (Version None)
Quarter: 2008Q4

REPORT INFORMATION
  Report Type: 
  Country: None (occurrence: None)
  Receive Date: 20081118
  Receipt Date: 20081107
  Transmission Date: 20090506
  Serious: Yes (Other)
  Sender: FDA-Public Use
  Company Number: CA-WYE-H06812808

PATIENT
  Sex: Male

DRUGS (1)
  1. PANTO [Suspect]
     Dosage: UNKNOWN
     Route: 042
     Dates: start: 20070601, end: 20070601

REACTIONS (1)
  - VENTRICULAR TACHYCARDIA [None]
